FAERS Safety Report 15670703 (Version 8)
Quarter: 2022Q3

REPORT INFORMATION
  Report Type: Report from Study
  Country: CN (occurrence: None)
  Receive Date: 20181129
  Receipt Date: 20220709
  Transmission Date: 20221027
  Serious: Yes (Hospitalization)
  Sender: FDA-Public Use
  Company Number: CN-ROCHE-2220251

PATIENT
  Age: 64 Year
  Sex: Female
  Weight: 47 kg

DRUGS (38)
  1. ATEZOLIZUMAB [Suspect]
     Active Substance: ATEZOLIZUMAB
     Indication: Ovarian epithelial cancer
     Dosage: MOST RECENT DOSE OF BLINDED ATEZOLIZUMAB PRIOR TO AE/SAE ONSET ON 10/NOV/2018
     Route: 041
     Dates: start: 20180906
  2. PACLITAXEL [Suspect]
     Active Substance: PACLITAXEL
     Indication: Ovarian epithelial cancer
     Dosage: MOST RECENT DOSE OF PACLITAXEL (240 MG) PRIOR TO FIRST EPISODE OF MYELOSUPPRESSION ONSET ON 10/NOV/2
     Route: 042
     Dates: start: 20180906
  3. CARBOPLATIN [Suspect]
     Active Substance: CARBOPLATIN
     Indication: Ovarian epithelial cancer
     Dosage: MOST RECENT DOSE OF CARBOPLATIN (660 MG) PRIOR TO FIRST EPISODE OF MYELOSUPPRESSION ONSET ON 10/NOV/
     Route: 042
     Dates: start: 20180906
  4. BEVACIZUMAB [Suspect]
     Active Substance: BEVACIZUMAB
     Indication: Ovarian epithelial cancer
     Dosage: MOST RECENT DOSE OF BEVACIZUMAB (705 MG) TO FIRST EPISODE OF MYELOSUPPRESSION ONSET ON 10/NOV/2018?M
     Route: 042
     Dates: start: 20180927
  5. HYDROTALCITE [Concomitant]
     Active Substance: HYDROTALCITE
     Dates: start: 20180929
  6. CANNABIS SATIVA SEED\HERBALS [Concomitant]
     Active Substance: CANNABIS SATIVA SEED\HERBALS
     Dates: start: 20180930, end: 20190125
  7. CANNABIS SATIVA SEED\HERBALS [Concomitant]
     Active Substance: CANNABIS SATIVA SEED\HERBALS
     Route: 048
     Dates: start: 20181109, end: 20181109
  8. DEXAMETHASONE ACETATE [Concomitant]
     Active Substance: DEXAMETHASONE ACETATE
     Indication: Hypersensitivity
     Route: 048
     Dates: start: 20181109, end: 20181109
  9. DEXAMETHASONE ACETATE [Concomitant]
     Active Substance: DEXAMETHASONE ACETATE
     Route: 048
     Dates: start: 20181201, end: 20181201
  10. DEXAMETHASONE ACETATE [Concomitant]
     Active Substance: DEXAMETHASONE ACETATE
     Route: 048
     Dates: start: 20181227, end: 20181227
  11. LORATADINE [Concomitant]
     Active Substance: LORATADINE
     Indication: Allergy prophylaxis
     Dates: start: 20181110, end: 20181110
  12. LORATADINE [Concomitant]
     Active Substance: LORATADINE
     Dates: start: 20181202, end: 20181202
  13. LORATADINE [Concomitant]
     Active Substance: LORATADINE
     Dates: start: 20181228, end: 20181228
  14. LORATADINE [Concomitant]
     Active Substance: LORATADINE
     Dates: start: 20190119, end: 20190119
  15. CIMETIDINE [Concomitant]
     Active Substance: CIMETIDINE
     Indication: Allergy prophylaxis
     Dates: start: 20181110, end: 20181110
  16. CIMETIDINE [Concomitant]
     Active Substance: CIMETIDINE
     Dates: start: 20181202, end: 20181202
  17. CIMETIDINE [Concomitant]
     Active Substance: CIMETIDINE
     Dates: start: 20181228, end: 20181228
  18. CIMETIDINE [Concomitant]
     Active Substance: CIMETIDINE
     Dates: start: 20190119, end: 20190119
  19. DEXAMETHASONE SODIUM PHOSPHATE [Concomitant]
     Active Substance: DEXAMETHASONE SODIUM PHOSPHATE
     Indication: Erythema
     Route: 042
     Dates: start: 20181110, end: 20181110
  20. DEXAMETHASONE SODIUM PHOSPHATE [Concomitant]
     Active Substance: DEXAMETHASONE SODIUM PHOSPHATE
     Indication: Allergy prophylaxis
     Route: 042
     Dates: start: 20181124, end: 20181124
  21. DEXAMETHASONE SODIUM PHOSPHATE [Concomitant]
     Active Substance: DEXAMETHASONE SODIUM PHOSPHATE
     Route: 042
     Dates: start: 20181202, end: 20181202
  22. DEXAMETHASONE SODIUM PHOSPHATE [Concomitant]
     Active Substance: DEXAMETHASONE SODIUM PHOSPHATE
     Route: 042
     Dates: start: 20181228, end: 20181228
  23. DEXAMETHASONE SODIUM PHOSPHATE [Concomitant]
     Active Substance: DEXAMETHASONE SODIUM PHOSPHATE
     Route: 042
     Dates: start: 20190127, end: 20190127
  24. PALONOSETRON [Concomitant]
     Active Substance: PALONOSETRON
     Indication: Vomiting
     Dates: start: 20181110, end: 20181110
  25. PALONOSETRON [Concomitant]
     Active Substance: PALONOSETRON
     Dates: start: 20181202, end: 20181202
  26. PALONOSETRON [Concomitant]
     Active Substance: PALONOSETRON
     Dates: start: 20181228, end: 20181228
  27. OMEPRAZOLE SODIUM [Concomitant]
     Active Substance: OMEPRAZOLE SODIUM
     Dates: start: 20181110, end: 20181113
  28. OMEPRAZOLE SODIUM [Concomitant]
     Active Substance: OMEPRAZOLE SODIUM
     Dates: start: 20181202, end: 20181205
  29. OMEPRAZOLE SODIUM [Concomitant]
     Active Substance: OMEPRAZOLE SODIUM
     Dates: start: 20181228, end: 20181231
  30. GLUTATHIONE REDUCED [Concomitant]
     Dates: start: 20181110, end: 20181113
  31. GLUTATHIONE REDUCED [Concomitant]
     Dates: start: 20181202, end: 20181205
  32. GLUTATHIONE REDUCED [Concomitant]
     Dates: start: 20181228, end: 20181231
  33. GLUTATHIONE REDUCED [Concomitant]
     Dates: start: 20190118, end: 20190119
  34. FUROSEMIDE [Concomitant]
     Active Substance: FUROSEMIDE
     Indication: Polyuria
     Dates: start: 20181110, end: 20181111
  35. FUROSEMIDE [Concomitant]
     Active Substance: FUROSEMIDE
     Dates: start: 20181202, end: 20181203
  36. FUROSEMIDE [Concomitant]
     Active Substance: FUROSEMIDE
     Dates: start: 20181228, end: 20181228
  37. MUPIROCIN [Concomitant]
     Active Substance: MUPIROCIN
     Indication: Wound dehiscence
     Dosage: TREAT THE WOUND BURST
     Dates: start: 20181112, end: 20181115
  38. INSULIN NOS [Concomitant]
     Active Substance: INSULIN NOS
     Indication: Hyperglycaemia
     Dates: start: 20181228, end: 20181228

REACTIONS (1)
  - Myelosuppression [Recovered/Resolved]

NARRATIVE: CASE EVENT DATE: 20181122
